FAERS Safety Report 9402730 (Version 3)
Quarter: 2013Q3

REPORT INFORMATION
  Report Type: Report from Study
  Country: US (occurrence: US)
  Receive Date: 20130716
  Receipt Date: 20130812
  Transmission Date: 20140515
  Serious: Yes (Hospitalization)
  Sender: FDA-Public Use
  Company Number: US-AMGEN-USACT2013049034

PATIENT
  Age: 52 Year
  Sex: Female
  Weight: 70 kg

DRUGS (29)
  1. PANITUMUMAB [Suspect]
     Indication: FALLOPIAN TUBE CANCER
     Dosage: 2.5 MG/KG, QWK
     Route: 041
     Dates: start: 20130625
  2. GEMCITABINE [Concomitant]
     Indication: FALLOPIAN TUBE CANCER
     Dosage: 600 MG/M2, UNK
     Route: 041
     Dates: start: 20130625
  3. CARBOPLATIN [Concomitant]
     Indication: FALLOPIAN TUBE CANCER STAGE III
     Dosage: UNK
     Route: 042
     Dates: start: 20120106
  4. TAXOL [Concomitant]
     Indication: FALLOPIAN TUBE CANCER STAGE III
     Dosage: UNK
     Route: 042
     Dates: start: 20120106
  5. BEVACIZUMAB [Concomitant]
     Indication: FALLOPIAN TUBE CANCER STAGE III
     Dosage: UNK
     Route: 042
     Dates: start: 20120126
  6. DOXIL [Concomitant]
     Indication: FALLOPIAN TUBE CANCER STAGE III
     Dosage: UNK
     Route: 042
     Dates: start: 20121212
  7. AMBIEN [Concomitant]
     Indication: INSOMNIA
     Dosage: 10 MG, AS NECESSARY
     Route: 048
     Dates: start: 20130705
  8. SINGULAIR [Concomitant]
     Dosage: 10 MG, UNK
     Route: 048
     Dates: start: 20130705
  9. RANITIDINE [Concomitant]
     Dosage: 150 MG, UNK
     Route: 048
     Dates: start: 20130705
  10. OMEPRAZOLE [Concomitant]
     Dosage: 20 MG, UNK
     Route: 048
     Dates: start: 20130403
  11. FLOVENT [Concomitant]
     Dosage: 220 MUG, BID
     Route: 055
     Dates: start: 20130705
  12. HYDROCHLOROTHIAZIDE [Concomitant]
     Indication: BLOOD PRESSURE
     Dosage: 125 MG, QD
     Route: 048
     Dates: start: 20130705
  13. LISINOPRIL [Concomitant]
     Dosage: 20 MG, UNK
     Route: 048
     Dates: start: 20130705
  14. SENNA [Concomitant]
     Dosage: UNK UNK, BID
     Route: 048
     Dates: start: 20130403
  15. OXYCODONE [Concomitant]
     Indication: PAIN
     Dosage: 5 MG, Q12H
     Route: 048
     Dates: start: 20130718
  16. PROMETHAZINE [Concomitant]
     Indication: NAUSEA
     Dosage: 125 MG, UNK
     Route: 048
  17. PROMETHAZINE [Concomitant]
     Indication: VOMITING
  18. ONDANSETRON [Concomitant]
     Indication: NAUSEA
     Dosage: 8 MG, AS NECESSARY
     Route: 048
  19. ONDANSETRON [Concomitant]
     Indication: VOMITING
  20. IBUPROFEN [Concomitant]
     Indication: PAIN
     Dosage: 200 MG, Q8H
     Route: 048
     Dates: start: 20130715
  21. SODIUM CHLORIDE [Concomitant]
     Dosage: 250 ML, UNK
     Route: 042
  22. HEPARIN [Concomitant]
     Dosage: 500 UNIT, UNK
     Route: 042
     Dates: start: 20120625
  23. DEXAMETHASONE [Concomitant]
     Dosage: 10 MG, UNK
     Route: 042
     Dates: start: 20130625
  24. PALONOSETRON [Concomitant]
     Dosage: 0.25 MG, UNK
     Route: 042
     Dates: start: 20130625
  25. HYDROCORTISON [Concomitant]
     Indication: PROCTALGIA
     Dosage: UNK
     Dates: start: 20130718
  26. DOCUSATE W/SENNA [Concomitant]
     Dosage: UNK
     Dates: start: 20130705
  27. POLYETHYLENE GLYCOL [Concomitant]
     Dosage: UNK UNK, BID
     Route: 048
     Dates: start: 20130613
  28. BISACODYL [Concomitant]
     Indication: CONSTIPATION
     Dosage: 10 MG, AS NECESSARY
     Route: 048
  29. METOCLOPRAMIDE [Concomitant]
     Dosage: 5 MG, AS NECESSARY
     Route: 048
     Dates: start: 20130323

REACTIONS (1)
  - Small intestinal obstruction [Recovered/Resolved]
